FAERS Safety Report 18104105 (Version 1)
Quarter: 2020Q3

REPORT INFORMATION
  Report Type: Spontaneous
  Country: US (occurrence: US)
  Receive Date: 20200802
  Receipt Date: 20200802
  Transmission Date: 20201103
  Serious: Yes (Hospitalization)
  Sender: FDA-Public Use
  Company Number: None

PATIENT
  Age: 76 Year
  Sex: Male

DRUGS (1)
  1. TORSEMIDE (TORSEMIDE 100MG TAB) [Suspect]
     Active Substance: TORSEMIDE
     Indication: CARDIAC FAILURE CONGESTIVE
     Route: 048
     Dates: start: 20190305

REACTIONS (4)
  - Urinary incontinence [None]
  - Peripheral swelling [None]
  - Cardiac failure congestive [None]
  - Therapy interrupted [None]

NARRATIVE: CASE EVENT DATE: 20200626
